FAERS Safety Report 7393707-8 (Version None)
Quarter: 2011Q1

REPORT INFORMATION
  Report Type: 
  Country: None (occurrence: None)
  Receive Date: 20110331
  Receipt Date: 20110331
  Transmission Date: 20110831
  Serious: Yes (Disabling)
  Sender: FDA-Public Use
  Company Number: None

PATIENT
  Sex: Female
  Weight: 86.1834 kg

DRUGS (1)
  1. PROPOXYPHENE HCL AND ACETAMINOPHEN [Suspect]
     Indication: ARTHRITIS
     Dosage: TAKE 1 TABLET BY MOUTH 3 TIMES A DAY AS NEEDED FOR PAIN 3 TIMES A DAY FOR JOINT PAIN
     Route: 048
     Dates: start: 20100917

REACTIONS (3)
  - HYPERTENSION [None]
  - CARDIAC DISORDER [None]
  - CHEST PAIN [None]
